FAERS Safety Report 7682399-6 (Version None)
Quarter: 2011Q3

REPORT INFORMATION
  Report Type: 
  Country: None (occurrence: None)
  Receive Date: 20110815
  Receipt Date: 20110805
  Transmission Date: 20111222
  Serious: Yes (Hospitalization)
  Sender: FDA-Public Use
  Company Number: US-BRISTOL-MYERS SQUIBB COMPANY-15949993

PATIENT
  Age: 54 Year
  Sex: Male
  Weight: 96 kg

DRUGS (1)
  1. IPILIMUMAB [Suspect]
     Indication: MALIGNANT MELANOMA
     Dosage: 10 MG/KG IV OVER ON D1 Q12 WEEKS NO OF COURSE-4 LAST DOSE ON 27JUL2011
     Route: 042
     Dates: start: 20110524

REACTIONS (1)
  - PLATELET COUNT DECREASED [None]
